FAERS Safety Report 14731160 (Version 1)
Quarter: 2018Q2

REPORT INFORMATION
  Report Type: Report from Study
  Country: US (occurrence: US)
  Receive Date: 20180406
  Receipt Date: 20180406
  Transmission Date: 20180711
  Serious: Yes (Hospitalization, Other)
  Sender: FDA-Public Use
  Company Number: US-GILEAD-2018-0331362

PATIENT
  Age: 45 Year
  Sex: Male

DRUGS (1)
  1. RANOLAZINE. [Suspect]
     Active Substance: RANOLAZINE
     Indication: ANGINA PECTORIS
     Dosage: 500 MG, BID
     Route: 048
     Dates: start: 20150101, end: 20180101

REACTIONS (5)
  - Catheterisation cardiac [Not Recovered/Not Resolved]
  - Catheterisation cardiac [Not Recovered/Not Resolved]
  - Spinal decompression [Not Recovered/Not Resolved]
  - Catheterisation cardiac [Not Recovered/Not Resolved]
  - Intentional dose omission [Not Recovered/Not Resolved]

NARRATIVE: CASE EVENT DATE: 20150915
